FAERS Safety Report 9102652 (Version 2)
Quarter: 2014Q2

REPORT INFORMATION
  Report Type: Spontaneous
  Country: US (occurrence: US)
  Receive Date: 20130220
  Receipt Date: 20140418
  Transmission Date: 20141212
  Serious: Yes (Hospitalization)
  Sender: FDA-Public Use
  Company Number: US-B.I. PHARMACEUTICALS,INC./RIDGEFIELD-2013-BI-03938BP

PATIENT
  Age: 82 Year
  Sex: Male
  Weight: 78.02 kg

DRUGS (12)
  1. PRADAXA [Suspect]
     Indication: ANTICOAGULANT THERAPY
     Route: 065
     Dates: start: 20110207, end: 20110212
  2. PRADAXA [Suspect]
     Indication: ATRIAL FIBRILLATION
  3. BABY ASPIRIN [Concomitant]
     Route: 065
  4. COREG [Concomitant]
     Route: 065
  5. LEVOTHYROXINE [Concomitant]
     Route: 065
  6. DIOVAN [Concomitant]
     Route: 065
  7. AMIODARONE [Concomitant]
     Route: 065
  8. CYANOCOBALAMIN [Concomitant]
     Route: 065
  9. MULTIVITAMIN [Concomitant]
     Route: 065
  10. LIPITOR [Concomitant]
     Route: 065
  11. RANITIDINE [Concomitant]
     Route: 065
  12. ZOFRAN [Concomitant]
     Route: 065

REACTIONS (2)
  - Haematuria [Unknown]
  - Haemorrhagic anaemia [Unknown]
